FAERS Safety Report 5332175-4 (Version None)
Quarter: 2007Q2

REPORT INFORMATION
  Report Type: 
  Country: None (occurrence: None)
  Receive Date: 20070521
  Receipt Date: 20070507
  Transmission Date: 20071010
  Serious: Yes (Other)
  Sender: FDA-Public Use
  Company Number: 100#08#2007-01646

PATIENT
  Sex: Male

DRUGS (6)
  1. SERTRALINE [Suspect]
     Indication: DRUG EXPOSURE DURING PREGNANCY
     Route: 064
  2. RISPERIDONE [Suspect]
     Indication: DRUG EXPOSURE DURING PREGNANCY
     Route: 064
  3. DIAZEPAM [Suspect]
     Indication: DRUG EXPOSURE DURING PREGNANCY
     Route: 064
  4. PIPOTIAZINE (PIPOTIAZINE) (PIPOTIAZINE) [Suspect]
     Indication: DRUG EXPOSURE DURING PREGNANCY
     Route: 064
  5. PROCYCLIDINE (PROCYCLIDINE) (PROCYCLIDINE) [Concomitant]
  6. TEMAZEPAM [Concomitant]

REACTIONS (4)
  - CONGENITAL NEUROLOGICAL DISORDER [None]
  - DRUG EXPOSURE DURING PREGNANCY [None]
  - MATERNAL ALCOHOL USE [None]
  - MATERNAL USE OF ILLICIT DRUGS [None]
